FAERS Safety Report 21475151 (Version 5)
Quarter: 2024Q1

REPORT INFORMATION
  Report Type: Other
  Country: US (occurrence: None)
  Receive Date: 20221019
  Receipt Date: 20240220
  Transmission Date: 20240410
  Serious: Yes (Other)
  Sender: FDA-Public Use
  Company Number: US-ROCHE-2945381

PATIENT
  Age: 48 Year
  Sex: Female
  Weight: 58.06 kg

DRUGS (14)
  1. OCREVUS [Suspect]
     Active Substance: OCRELIZUMAB
     Indication: Primary progressive multiple sclerosis
     Route: 042
     Dates: start: 20210401
  2. OCREVUS [Suspect]
     Active Substance: OCRELIZUMAB
     Route: 042
     Dates: start: 20231228
  3. RITUXAN [Suspect]
     Active Substance: RITUXIMAB
     Indication: Multiple sclerosis
     Route: 065
     Dates: start: 20161128
  4. AMOXICILLIN [Concomitant]
     Active Substance: AMOXICILLIN
  5. BACLOFEN [Concomitant]
     Active Substance: BACLOFEN
  6. CANNABIDIOL [Concomitant]
     Active Substance: CANNABIDIOL
  7. EPIPEN [Concomitant]
     Active Substance: EPINEPHRINE
  8. FERROUS SULFATE [Concomitant]
     Active Substance: FERROUS SULFATE
  9. MACROBID [Concomitant]
     Active Substance: NITROFURANTOIN\NITROFURANTOIN MONOHYDRATE
  10. PROPRANOLOL HYDROCHLORIDE [Concomitant]
     Active Substance: PROPRANOLOL HYDROCHLORIDE
  11. TAMSULOSIN [Concomitant]
     Active Substance: TAMSULOSIN
  12. INFLUENZA VIRUS VACCINE [Concomitant]
     Active Substance: INFLUENZA VIRUS VACCINE
  13. ESTRADIOL [Concomitant]
     Active Substance: ESTRADIOL
  14. CANNABIS SATIVA SUBSP. INDICA TOP [Concomitant]
     Active Substance: CANNABIS SATIVA SUBSP. INDICA TOP

REACTIONS (27)
  - Hepatitis [Unknown]
  - Hepatic cirrhosis [Unknown]
  - Pneumonia [Unknown]
  - Nephrolithiasis [Unknown]
  - Off label use [Unknown]
  - Influenza [Unknown]
  - Hypothyroidism [Unknown]
  - Malnutrition [Unknown]
  - Vitamin B12 deficiency [Unknown]
  - Vitamin D deficiency [Unknown]
  - Hyperlipidaemia [Unknown]
  - Anaemia [Unknown]
  - Affective disorder [Unknown]
  - Insomnia [Unknown]
  - Restless legs syndrome [Unknown]
  - Gastrooesophageal reflux disease [Unknown]
  - Irritable bowel syndrome [Unknown]
  - Urinary tract infection [Unknown]
  - Eczema [Unknown]
  - Diffuse alopecia [Unknown]
  - Fatigue [Recovered/Resolved]
  - Abnormal loss of weight [Unknown]
  - Abdominal pain [Unknown]
  - Impaired fasting glucose [Unknown]
  - Memory impairment [Unknown]
  - Muscle spasticity [Unknown]
  - Off label use [Unknown]

NARRATIVE: CASE EVENT DATE: 20200203
